FAERS Safety Report 14835982 (Version 2)
Quarter: 2018Q2

REPORT INFORMATION
  Report Type: Spontaneous
  Country: US (occurrence: US)
  Receive Date: 20180502
  Receipt Date: 20180531
  Transmission Date: 20180711
  Serious: Yes (Other)
  Sender: FDA-Public Use
  Company Number: US-009507513-1804USA012528

PATIENT
  Age: 35 Year
  Sex: Female

DRUGS (2)
  1. FOLLISTIM AQ [Suspect]
     Active Substance: FOLLITROPIN
     Indication: INFERTILITY FEMALE
     Dosage: 375 UNITS, DAILY UD, STRENGTH: 900 UNITS
     Route: 058
     Dates: start: 20171110
  2. CETROTIDE [Suspect]
     Active Substance: CETRORELIX ACETATE
     Dosage: UNK
     Dates: start: 20180424

REACTIONS (2)
  - Urticaria [Recovering/Resolving]
  - Chest discomfort [Recovering/Resolving]

NARRATIVE: CASE EVENT DATE: 20180424
